FAERS Safety Report 14889400 (Version 3)
Quarter: 2018Q3

REPORT INFORMATION
  Report Type: Spontaneous
  Country: GB (occurrence: GB)
  Receive Date: 20180514
  Receipt Date: 20180702
  Transmission Date: 20181010
  Serious: Yes (Other)
  Sender: FDA-Public Use
  Company Number: GB-CONCORDIA PHARMACEUTICALS INC.-GSH201805-001496

PATIENT
  Age: 68 Year
  Sex: Female

DRUGS (1)
  1. HYDROXYCHLOROQUINE [Suspect]
     Active Substance: HYDROXYCHLOROQUINE
     Indication: SJOGREN^S SYNDROME
     Dosage: (1500 G ON VARYING DOSES) 200?400 MG DAILY
     Route: 065

REACTIONS (4)
  - Off label use [Unknown]
  - Retinal toxicity [Unknown]
  - Visual acuity reduced [Unknown]
  - Maculopathy [Unknown]
